FAERS Safety Report 15640773 (Version 1)
Quarter: 2018Q4

REPORT INFORMATION
  Report Type: Spontaneous
  Country: US (occurrence: US)
  Receive Date: 20181120
  Receipt Date: 20181120
  Transmission Date: 20190205
  Serious: Yes (Other)
  Sender: FDA-Public Use
  Company Number: US-BAYER-2018-211804

PATIENT
  Age: 45 Year
  Sex: Male

DRUGS (2)
  1. BETASERON [Suspect]
     Active Substance: INTERFERON BETA-1B
     Indication: MULTIPLE SCLEROSIS
     Dosage: 0.3 MG, UNK
  2. BETACONNECT [Suspect]
     Active Substance: DEVICE

REACTIONS (9)
  - Gait disturbance [Unknown]
  - Hemianaesthesia [Unknown]
  - Decreased interest [Unknown]
  - Limb discomfort [Unknown]
  - Multiple sclerosis relapse [Unknown]
  - Depressed mood [Unknown]
  - Fatigue [Unknown]
  - Incorrect dose administered by device [Unknown]
  - Muscle tightness [Unknown]

NARRATIVE: CASE EVENT DATE: 2016
